FAERS Safety Report 5999696-2 (Version None)
Quarter: 2008Q4

REPORT INFORMATION
  Report Type: 
  Country: None (occurrence: None)
  Receive Date: 20081215
  Receipt Date: 20081204
  Transmission Date: 20090506
  Serious: Yes (Hospitalization, Other)
  Sender: FDA-Public Use
  Company Number: NZ-NOVOPROD-282066

PATIENT
  Age: 66 Year
  Sex: Female

DRUGS (2)
  1. HUMALOG PEN [Suspect]
     Indication: TYPE 1 DIABETES MELLITUS
     Dosage: 26 IU, QD
     Dates: end: 20070101
  2. PROTAPHANE HM PENFILL [Suspect]
     Indication: TYPE 1 DIABETES MELLITUS
     Dosage: 17 IU, QD

REACTIONS (1)
  - CEREBRAL HAEMORRHAGE [None]
